FAERS Safety Report 5105313-6 (Version None)
Quarter: 2006Q3

REPORT INFORMATION
  Report Type: 
  Country: None (occurrence: None)
  Receive Date: 20060912
  Receipt Date: 20060905
  Transmission Date: 20061208
  Serious: Yes (Hospitalization, Other)
  Sender: FDA-Public Use
  Company Number: 2005BH000066

PATIENT
  Age: 57 Year
  Sex: Female

DRUGS (1)
  1. GENTAMICIN [Suspect]
     Indication: APPENDICITIS

REACTIONS (20)
  - ANOREXIA [None]
  - ATRIOVENTRICULAR BLOCK FIRST DEGREE [None]
  - BARTTER'S SYNDROME [None]
  - BLOOD PARATHYROID HORMONE DECREASED [None]
  - DEHYDRATION [None]
  - DIZZINESS [None]
  - ELECTROCARDIOGRAM ABNORMAL [None]
  - ELECTROCARDIOGRAM U-WAVE ABNORMALITY [None]
  - HYPERCALCAEMIA [None]
  - HYPERCALCIURIA [None]
  - HYPERMAGNESAEMIA [None]
  - HYPOACUSIS [None]
  - HYPOCALCAEMIA [None]
  - HYPOKALAEMIA [None]
  - HYPOMAGNESAEMIA [None]
  - METABOLIC ALKALOSIS [None]
  - MUSCLE SPASMS [None]
  - MUSCULAR WEAKNESS [None]
  - PARAESTHESIA [None]
  - TETANY [None]
